FAERS Safety Report 7489602-6 (Version None)
Quarter: 2011Q2

REPORT INFORMATION
  Report Type: 
  Country: None (occurrence: None)
  Receive Date: 20110519
  Receipt Date: 20110509
  Transmission Date: 20111010
  Serious: Yes (Hospitalization)
  Sender: FDA-Public Use
  Company Number: DE-BIOGENIDEC-2011BI017796

PATIENT
  Age: 61 Year
  Sex: Female
  Weight: 120 kg

DRUGS (2)
  1. IBUPROFEN [Concomitant]
     Indication: PROPHYLAXIS
     Route: 048
     Dates: start: 20100601
  2. AVONEX [Suspect]
     Indication: MULTIPLE SCLEROSIS
     Route: 030
     Dates: start: 20100601

REACTIONS (3)
  - INFLUENZA LIKE ILLNESS [None]
  - UTERINE CANCER [None]
  - INJECTION SITE HAEMORRHAGE [None]
